FAERS Safety Report 15643951 (Version 1)
Quarter: 2018Q4

REPORT INFORMATION
  Report Type: Spontaneous
  Country: US (occurrence: US)
  Receive Date: 20181115
  Receipt Date: 20181115
  Transmission Date: 20190205
  Serious: Yes (Other)
  Sender: FDA-Public Use
  Company Number: None

PATIENT
  Age: 57 Year
  Sex: Female
  Weight: 76.5 kg

DRUGS (6)
  1. AIMOVIG [Suspect]
     Active Substance: ERENUMAB-AOOE
     Indication: MIGRAINE
     Dosage: ?          OTHER STRENGTH:70CC;QUANTITY:1 INJECTION(S);OTHER FREQUENCY:ONCE A MONTH;?
     Route: 058
     Dates: start: 20181111, end: 20181111
  2. PROMETHAZINE [Concomitant]
     Active Substance: PROMETHAZINE\PROMETHAZINE HYDROCHLORIDE
  3. MULTIVITAMIN [Concomitant]
     Active Substance: VITAMINS
  4. CLONAZEPAM. [Concomitant]
     Active Substance: CLONAZEPAM
  5. LEXAPRO [Concomitant]
     Active Substance: ESCITALOPRAM OXALATE
  6. HYDROCODONE [Concomitant]
     Active Substance: HYDROCODONE

REACTIONS (9)
  - Suicidal ideation [None]
  - Anger [None]
  - Migraine [None]
  - Blood pressure increased [None]
  - Heart rate increased [None]
  - Drug ineffective [None]
  - Depressed mood [None]
  - Crying [None]
  - Inadequate analgesia [None]

NARRATIVE: CASE EVENT DATE: 20181111
